FAERS Safety Report 15540985 (Version 1)
Quarter: 2018Q4

REPORT INFORMATION
  Report Type: Report from Study
  Country: BR (occurrence: BR)
  Receive Date: 20181023
  Receipt Date: 20181023
  Transmission Date: 20190205
  Serious: Yes (Other)
  Sender: FDA-Public Use
  Company Number: PHHY2018BR129763

PATIENT
  Sex: Female
  Weight: 50 kg

DRUGS (1)
  1. NEVANAC [Suspect]
     Active Substance: NEPAFENAC
     Indication: PRODUCT USED FOR UNKNOWN INDICATION
     Dosage: 1 DRP, TID
     Route: 065

REACTIONS (2)
  - Cataract [Recovering/Resolving]
  - Visual impairment [Recovering/Resolving]
